FAERS Safety Report 23752895 (Version 2)
Quarter: 2024Q4

REPORT INFORMATION
  Report Type: Report from Study
  Country: US (occurrence: US)
  Receive Date: 20240417
  Receipt Date: 20241230
  Transmission Date: 20250114
  Serious: No
  Sender: DR REDDYS
  Company Number: US-E2BLSMVVAL-CLI/USA/24/0005436

PATIENT
  Age: 2 Year
  Sex: Female
  Weight: 15.648 kg

DRUGS (2)
  1. JAVYGTOR [Suspect]
     Active Substance: SAPROPTERIN DIHYDROCHLORIDE
     Indication: Phenylketonuria
     Dosage: DISSOLVE 100 MG POWDER PACKET IN 4-8 OUNCE OF WATER OR APPLE JUICE.
     Route: 048
  2. JAVYGTOR [Suspect]
     Active Substance: SAPROPTERIN DIHYDROCHLORIDE
     Indication: Hyperphenylalaninaemia
     Dosage: DISSOLVE TWO 100 MG POWDER PACKETS IN 4-8 OUNCES OF WATER OR APPLE JUICE AND TAKE BY MOUTH DAILY. TO
     Route: 048

REACTIONS (3)
  - Hyperphagia [Unknown]
  - Product dose omission issue [Unknown]
  - Wrong technique in product usage process [Unknown]
